FAERS Safety Report 7386941-4 (Version None)
Quarter: 2011Q1

REPORT INFORMATION
  Report Type: 
  Country: None (occurrence: None)
  Receive Date: 20110323
  Receipt Date: 20110309
  Transmission Date: 20110831
  Serious: Yes (Life-Threatening)
  Sender: FDA-Public Use
  Company Number: 029314

PATIENT
  Age: 81 Year
  Sex: Female

DRUGS (3)
  1. PREDONINE [Concomitant]
  2. XYZAL [Suspect]
     Indication: RHINITIS ALLERGIC
     Dosage: 5 MG QD ORAL
     Route: 048
     Dates: start: 20110307, end: 20110307
  3. BENET [Concomitant]

REACTIONS (3)
  - DYSPNOEA [None]
  - SHOCK [None]
  - ASTHMA [None]
